FAERS Safety Report 19002444 (Version 1)
Quarter: 2021Q1

REPORT INFORMATION
  Report Type: Report from Study
  Country: US (occurrence: US)
  Receive Date: 20210312
  Receipt Date: 20210312
  Transmission Date: 20210420
  Serious: Yes (Other)
  Sender: FDA-Public Use
  Company Number: US-BRISTOL-MYERS SQUIBB COMPANY-BMS-2021-020192

PATIENT
  Age: 61 Year
  Sex: Female

DRUGS (1)
  1. ABATACEPT [Suspect]
     Active Substance: ABATACEPT
     Indication: RHEUMATOID ARTHRITIS
     Dosage: 125 MILLIGRAM, QWK
     Route: 058
     Dates: start: 2020

REACTIONS (10)
  - Fibromyalgia [Unknown]
  - Migraine [Unknown]
  - Injection site pain [Unknown]
  - Hypertension [Unknown]
  - Accidental exposure to product [Unknown]
  - Cataract [Unknown]
  - Hernia [Unknown]
  - Urinary tract infection [Unknown]
  - Injection site bruising [Unknown]
  - Needle issue [Unknown]

NARRATIVE: CASE EVENT DATE: 20210219
